FAERS Safety Report 4501812-6 (Version None)
Quarter: 2004Q4

REPORT INFORMATION
  Report Type: 
  Country: None (occurrence: None)
  Receive Date: 20041115
  Receipt Date: 20041115
  Transmission Date: 20050328
  Serious: Yes (Hospitalization)
  Sender: FDA-Public Use
  Company Number: None

PATIENT
  Age: 71 Year
  Sex: Male
  Weight: 79.3 kg

DRUGS (21)
  1. PREDNISONE [Suspect]
  2. ASPIRIN [Suspect]
  3. PENTOXIFYLLINE [Concomitant]
  4. METOPROLOL [Concomitant]
  5. TERAZOSIN HCL [Concomitant]
  6. ACETAMINOPHEN [Concomitant]
  7. ISOSORBIDE DINITRATE [Concomitant]
  8. NITROGLYCERIN [Concomitant]
  9. SIMVASTATIN [Concomitant]
  10. HYDROCHLOROTHIAZIDE [Concomitant]
  11. TRAZODONE HCL [Concomitant]
  12. PANCRELIPASE [Concomitant]
  13. CLONIDINE [Concomitant]
  14. FELODIPINE [Concomitant]
  15. FOSINOPRIL SODIUM [Concomitant]
  16. FORMOTEROL INHALATION [Concomitant]
  17. IPRATROPIUM/ALBUTEROL [Concomitant]
  18. OMEPRAZOLE [Concomitant]
  19. MULTI-VITAMIN [Concomitant]
  20. CITALOPRAM [Concomitant]
  21. BUSPIRONE [Concomitant]

REACTIONS (1)
  - GASTRITIS [None]
